FAERS Safety Report 9281636 (Version 1)
Quarter: 2013Q2

REPORT INFORMATION
  Report Type: Report from Study
  Country: KR (occurrence: KR)
  Receive Date: 20130509
  Receipt Date: 20130509
  Transmission Date: 20140414
  Serious: Yes (Other)
  Sender: FDA-Public Use
  Company Number: KR-BAXTER-2013BAX017277

PATIENT
  Sex: 0

DRUGS (4)
  1. SUPRANE [Suspect]
     Indication: GENERAL ANAESTHESIA
     Dosage: 1.7 MAC FOR 5 MINUTES
  2. REMIFENTANIL [Suspect]
     Indication: GENERAL ANAESTHESIA
     Dosage: 2 NG/ML
  3. LIDOCAINE [Suspect]
     Indication: ANAESTHESIA
  4. ETOMIDATE [Suspect]
     Indication: ANAESTHESIA

REACTIONS (1)
  - Mean arterial pressure increased [Unknown]
